FAERS Safety Report 5532566-2 (Version None)
Quarter: 2007Q4

REPORT INFORMATION
  Report Type: 
  Country: None (occurrence: None)
  Receive Date: 20071203
  Receipt Date: 20071126
  Transmission Date: 20080405
  Serious: No
  Sender: FDA-Public Use
  Company Number: US-BOEHRINGER INGELHEIM PHARMACEUTICALS, INC.-2007-BP-25164BP

PATIENT
  Age: 67 Year
  Sex: Male

DRUGS (6)
  1. SPIRIVA [Suspect]
     Indication: CHRONIC OBSTRUCTIVE PULMONARY DISEASE
     Route: 055
     Dates: start: 20070501
  2. PREDNISONE TAB [Concomitant]
  3. ACTONEL [Concomitant]
  4. XOPENEX [Concomitant]
  5. LORAZEPAM [Concomitant]
  6. 'HTN MED' [Concomitant]

REACTIONS (1)
  - URINARY RETENTION [None]
